FAERS Safety Report 21358296 (Version 7)
Quarter: 2023Q1

REPORT INFORMATION
  Report Type: Report from Study
  Country: CA (occurrence: CA)
  Receive Date: 20220921
  Receipt Date: 20230316
  Transmission Date: 20230417
  Serious: Yes (Death, Hospitalization, Other)
  Sender: FDA-Public Use
  Company Number: CA-HLS-202201688

PATIENT
  Age: 62 Year
  Sex: Female

DRUGS (1)
  1. CLOZARIL [Suspect]
     Active Substance: CLOZAPINE
     Indication: Product used for unknown indication
     Route: 048
     Dates: start: 19991228, end: 20230126

REACTIONS (8)
  - Anaemia [Unknown]
  - Neutropenia [Recovered/Resolved]
  - Neutrophilia [Recovered/Resolved]
  - Neoplasm malignant [Fatal]
  - Blood creatinine increased [Unknown]
  - Platelet count decreased [Unknown]
  - Leukopenia [Recovering/Resolving]
  - Leukocytosis [Recovered/Resolved]

NARRATIVE: CASE EVENT DATE: 20220914
